FAERS Safety Report 20454251 (Version 4)
Quarter: 2022Q2

REPORT INFORMATION
  Report Type: Report from Study
  Country: US (occurrence: US)
  Receive Date: 20220210
  Receipt Date: 20220426
  Transmission Date: 20220721
  Serious: Yes (Hospitalization, Other)
  Sender: FDA-Public Use
  Company Number: US-ABBVIE-22K-163-4257225-00

PATIENT
  Age: 73 Year
  Sex: Male
  Weight: 60.836 kg

DRUGS (8)
  1. DUOPA [Suspect]
     Active Substance: CARBIDOPA\LEVODOPA
     Indication: Parkinson^s disease
     Route: 050
     Dates: start: 20160530, end: 20211122
  2. DUOPA [Suspect]
     Active Substance: CARBIDOPA\LEVODOPA
     Route: 050
     Dates: end: 202201
  3. EXELON [Concomitant]
     Active Substance: RIVASTIGMINE TARTRATE
     Indication: Product used for unknown indication
     Route: 062
  4. NUPLAZID [Concomitant]
     Active Substance: PIMAVANSERIN TARTRATE
     Indication: Product used for unknown indication
     Route: 048
  5. METHIMAZOLE [Concomitant]
     Active Substance: METHIMAZOLE
     Indication: Product used for unknown indication
     Route: 048
  6. NUPLAZID [Concomitant]
     Active Substance: PIMAVANSERIN TARTRATE
     Indication: Hallucination
  7. RIVASTIGMINE TRANSDERMAL SYSTEM [Concomitant]
     Active Substance: RIVASTIGMINE
     Indication: Delusion
  8. METHIMAZOLE [Concomitant]
     Active Substance: METHIMAZOLE
     Indication: Thyroid disorder

REACTIONS (24)
  - Blood urine present [Recovering/Resolving]
  - Atrial fibrillation [Recovering/Resolving]
  - Decubitus ulcer [Not Recovered/Not Resolved]
  - Spinal cord infection [Not Recovered/Not Resolved]
  - Ulcer [Recovered/Resolved]
  - Living in residential institution [Unknown]
  - Impaired healing [Recovering/Resolving]
  - Hospitalisation [Unknown]
  - Cough [Recovering/Resolving]
  - Movement disorder [Unknown]
  - COVID-19 [Recovered/Resolved]
  - General physical health deterioration [Not Recovered/Not Resolved]
  - Mobility decreased [Not Recovered/Not Resolved]
  - Communication disorder [Recovering/Resolving]
  - Staring [Recovering/Resolving]
  - Eye movement disorder [Recovering/Resolving]
  - Muscle contracture [Not Recovered/Not Resolved]
  - Dysstasia [Not Recovered/Not Resolved]
  - Gait inability [Unknown]
  - Pyrexia [Recovering/Resolving]
  - Device dislocation [Recovered/Resolved]
  - Parkinson^s disease [Not Recovered/Not Resolved]
  - Hip fracture [Recovered/Resolved]
  - Urinary tract infection [Not Recovered/Not Resolved]

NARRATIVE: CASE EVENT DATE: 20201101
